FAERS Safety Report 5661565-5 (Version None)
Quarter: 2008Q1

REPORT INFORMATION
  Report Type: 
  Country: None (occurrence: None)
  Receive Date: 20080312
  Receipt Date: 20080227
  Transmission Date: 20080703
  Serious: Yes (Hospitalization, Other)
  Sender: FDA-Public Use
  Company Number: DE-AMGEN-UK267722

PATIENT
  Age: 67 Year
  Sex: Female
  Weight: 57 kg

DRUGS (1)
  1. ARANESP [Suspect]
     Indication: ANAEMIA
     Route: 058
     Dates: start: 20070907

REACTIONS (2)
  - ILEUS [None]
  - PERITONITIS BACTERIAL [None]
